FAERS Safety Report 9135464 (Version 1)
Quarter: 2013Q1

REPORT INFORMATION
  Report Type: Spontaneous
  Country: US (occurrence: US)
  Receive Date: 20130219
  Receipt Date: 20130219
  Transmission Date: 20140127
  Serious: Yes (Hospitalization)
  Sender: FDA-Public Use
  Company Number: US-BRISTOL-MYERS SQUIBB COMPANY-16457053

PATIENT
  Age: 42 Year
  Sex: Male
  Weight: 101.13 kg

DRUGS (7)
  1. ORENCIA [Suspect]
     Indication: RHEUMATOID ARTHRITIS
     Route: 042
     Dates: start: 201109
  2. METHOTREXATE [Suspect]
  3. PREDNISONE [Concomitant]
  4. FOLIC ACID [Concomitant]
  5. NABUMETONE [Concomitant]
  6. TRAMADOL [Concomitant]
  7. BENTYL [Concomitant]

REACTIONS (1)
  - Pancreatitis [Recovering/Resolving]
